FAERS Safety Report 24374137 (Version 1)
Quarter: 2024Q3

REPORT INFORMATION
  Report Type: Spontaneous
  Country: GB (occurrence: None)
  Receive Date: 20240927
  Receipt Date: 20240927
  Transmission Date: 20241016
  Serious: Yes (Hospitalization, Other)
  Sender: Public
  Company Number: None

PATIENT
  Age: 15 Year
  Sex: Female
  Weight: 63 kg

DRUGS (1)
  1. PALFORZIA [Suspect]
     Active Substance: PEANUT

REACTIONS (3)
  - Henoch-Schonlein purpura [None]
  - Proteinuria [None]
  - Haematuria [None]

NARRATIVE: CASE EVENT DATE: 20240831
